FAERS Safety Report 14685190 (Version 1)
Quarter: 2018Q1

REPORT INFORMATION
  Report Type: Spontaneous
  Country: US (occurrence: US)
  Receive Date: 20180327
  Receipt Date: 20180327
  Transmission Date: 20180509
  Serious: No
  Sender: FDA-Public Use
  Company Number: US-BIOGEN-2018BI00547378

PATIENT
  Sex: Female

DRUGS (3)
  1. PLEGRIDY [Suspect]
     Active Substance: PEGINTERFERON BETA-1A
     Indication: MULTIPLE SCLEROSIS
     Route: 058
     Dates: start: 20150604, end: 20150806
  2. AVONEX [Suspect]
     Active Substance: INTERFERON BETA-1A
     Dosage: PEN KIT
     Route: 030
     Dates: start: 20150806
  3. AVONEX [Suspect]
     Active Substance: INTERFERON BETA-1A
     Indication: MULTIPLE SCLEROSIS
     Dosage: PEN KIT
     Route: 030
     Dates: start: 20140205, end: 20150604

REACTIONS (2)
  - Injection site swelling [Unknown]
  - Injection site erythema [Unknown]
